FAERS Safety Report 20461822 (Version 2)
Quarter: 2024Q2

REPORT INFORMATION
  Report Type: Report from Study
  Country: US (occurrence: US)
  Receive Date: 20220211
  Receipt Date: 20240506
  Transmission Date: 20240715
  Serious: No
  Sender: FDA-Public Use
  Company Number: US-BIOVITRUM-2022US01781

PATIENT
  Age: 64 Year
  Sex: Female

DRUGS (2)
  1. DOPTELET [Suspect]
     Active Substance: AVATROMBOPAG MALEATE
     Indication: Immune thrombocytopenia
     Dosage: ONCE DAILY
     Route: 048
     Dates: start: 20200528
  2. DOPTELET [Suspect]
     Active Substance: AVATROMBOPAG MALEATE
     Dosage: TAKE 2 TABLETS BY MOUTH SUN, MON, TUE, THIUR, FRI ?AND TAKE 1 TABLET ON WEDNESDAY AND SATURDAY WITH
     Route: 048

REACTIONS (1)
  - Alopecia [Unknown]
